FAERS Safety Report 4732892-0 (Version None)
Quarter: 2005Q3

REPORT INFORMATION
  Report Type: 
  Country: None (occurrence: None)
  Receive Date: 20050803
  Receipt Date: 20050429
  Transmission Date: 20060218
  Serious: No
  Sender: FDA-Public Use
  Company Number: US-GLAXOSMITHKLINE-A0556331A

PATIENT
  Sex: Male

DRUGS (3)
  1. AVANDAMET [Suspect]
     Route: 048
  2. AMARYL [Concomitant]
  3. METFORMIN [Concomitant]

REACTIONS (1)
  - WEIGHT INCREASED [None]
